FAERS Safety Report 9050405 (Version 1)
Quarter: 2013Q1

REPORT INFORMATION
  Report Type: Spontaneous
  Country: US (occurrence: US)
  Receive Date: 20130205
  Receipt Date: 20130205
  Transmission Date: 20140127
  Serious: No
  Sender: FDA-Public Use
  Company Number: US-PFIZER INC-2013040684

PATIENT
  Age: 95 Year
  Sex: Female
  Weight: 31.29 kg

DRUGS (2)
  1. NORVASC [Suspect]
     Indication: HYPERTENSION
     Dosage: 5 MG, DAILY
  2. LATANOPROST [Concomitant]
     Indication: EYE DISORDER
     Dosage: 1 GTT, DAILY

REACTIONS (1)
  - Blood pressure inadequately controlled [Not Recovered/Not Resolved]
